FAERS Safety Report 4568015-0 (Version None)
Quarter: 2005Q1

REPORT INFORMATION
  Report Type: 
  Country: None (occurrence: None)
  Receive Date: 20050128
  Receipt Date: 20050128
  Transmission Date: 20050727
  Serious: No
  Sender: FDA-Public Use
  Company Number: 9802

PATIENT
  Age: 69 Year

DRUGS (1)
  1. METHOTREXATE [Suspect]
     Indication: LYMPHOMA
     Dosage: 1.98 MG TOTAL

REACTIONS (15)
  - BONE MARROW DEPRESSION [None]
  - CEREBELLAR SYNDROME [None]
  - CHEMOTHERAPEUTIC DRUG LEVEL INCREASED [None]
  - CONFUSIONAL STATE [None]
  - CONVULSION [None]
  - DRUG CLEARANCE DECREASED [None]
  - HYPOTONIA [None]
  - LOSS OF CONSCIOUSNESS [None]
  - MUCOSAL INFLAMMATION [None]
  - MUSCLE SPASMS [None]
  - NEPHROPATHY TOXIC [None]
  - NERVOUS SYSTEM DISORDER [None]
  - OEDEMA PERIPHERAL [None]
  - PYREXIA [None]
  - VASCULITIS [None]
